FAERS Safety Report 9820721 (Version 1)
Quarter: 2014Q1

REPORT INFORMATION
  Report Type: Spontaneous
  Country: FR (occurrence: FR)
  Receive Date: 20140116
  Receipt Date: 20140116
  Transmission Date: 20141002
  Serious: Yes (Death, Life-Threatening, Hospitalization)
  Sender: FDA-Public Use
  Company Number: FR-ELI_LILLY_AND_COMPANY-FR201401002403

PATIENT
  Age: 63 Year
  Sex: Male

DRUGS (9)
  1. ALIMTA [Suspect]
     Indication: BRONCHIAL CARCINOMA
     Dosage: 500 MG, UNK
     Route: 042
     Dates: start: 20130610, end: 20130610
  2. CISPLATIN [Suspect]
     Indication: BRONCHIAL CARCINOMA
     Dosage: 144.75 MG, UNK
     Route: 042
     Dates: start: 20130610, end: 20130610
  3. GEMZAR [Suspect]
     Indication: BRONCHIAL CARCINOMA
     Dosage: 1940 MG, CYCLICAL
     Route: 042
     Dates: start: 20130722
  4. TAXOTERE [Concomitant]
  5. CORDARONE [Concomitant]
  6. CALCIPARINE [Concomitant]
  7. ATENOLOL [Concomitant]
  8. FUROSEMIDE [Concomitant]
  9. LANTUS [Concomitant]

REACTIONS (6)
  - Pulmonary oedema [Fatal]
  - Respiratory failure [Fatal]
  - Leukocytosis [Fatal]
  - Renal failure acute [Recovered/Resolved with Sequelae]
  - Acute respiratory distress syndrome [Not Recovered/Not Resolved]
  - Anaemia [Unknown]
